FAERS Safety Report 5383677-6 (Version None)
Quarter: 2007Q3

REPORT INFORMATION
  Report Type: 
  Country: None (occurrence: None)
  Receive Date: 20070706
  Receipt Date: 20070627
  Transmission Date: 20080115
  Serious: Yes (Life-Threatening, Hospitalization)
  Sender: FDA-Public Use
  Company Number: 015470

PATIENT
  Age: 22 Year
  Sex: Male

DRUGS (3)
  1. ADDERALL 10 [Suspect]
     Dosage: 50 MG, ONCE, ORAL
     Route: 048
     Dates: start: 20070519, end: 20070519
  2. MODAFINIL [Suspect]
     Dosage: 6000 MG, ONCE, ORAL
     Route: 048
     Dates: start: 20070519, end: 20070519
  3. ZONISAMIDE [Concomitant]

REACTIONS (20)
  - ACUTE RESPIRATORY DISTRESS SYNDROME [None]
  - ASPIRATION [None]
  - BACTERIAL INFECTION [None]
  - BLOOD PRESSURE DECREASED [None]
  - BRONCHOPLEURAL FISTULA [None]
  - CARDIOVASCULAR DISORDER [None]
  - GENERALISED NON-CONVULSIVE EPILEPSY [None]
  - HEPATIC FAILURE [None]
  - HYPOVOLAEMIA [None]
  - INTENTIONAL OVERDOSE [None]
  - METABOLIC ACIDOSIS [None]
  - PNEUMONIA [None]
  - PNEUMOTHORAX [None]
  - RENAL FAILURE [None]
  - RESPIRATORY FAILURE [None]
  - RHABDOMYOLYSIS [None]
  - SHIFT TO THE LEFT [None]
  - SINUS TACHYCARDIA [None]
  - STATUS EPILEPTICUS [None]
  - TOXIC ENCEPHALOPATHY [None]
